FAERS Safety Report 15567882 (Version 3)
Quarter: 2018Q4

REPORT INFORMATION
  Report Type: Spontaneous
  Country: US (occurrence: US)
  Receive Date: 20181030
  Receipt Date: 20181124
  Transmission Date: 20190205
  Serious: No
  Sender: FDA-Public Use
  Company Number: US-009507513-1810USA013291

PATIENT
  Age: 25 Year
  Sex: Female
  Weight: 114 kg

DRUGS (1)
  1. NEXPLANON [Suspect]
     Active Substance: ETONOGESTREL
     Indication: CONTRACEPTION
     Dosage: 1 IMPLANT
     Route: 059
     Dates: start: 20180201, end: 20181029

REACTIONS (2)
  - Device kink [Recovered/Resolved]
  - Skin turgor decreased [Unknown]

NARRATIVE: CASE EVENT DATE: 20181029
